FAERS Safety Report 4337719-7 (Version None)
Quarter: 2004Q2

REPORT INFORMATION
  Report Type: 
  Country: None (occurrence: None)
  Receive Date: 20040413
  Receipt Date: 20040330
  Transmission Date: 20050107
  Serious: Yes (Other)
  Sender: FDA-Public Use
  Company Number: JP-ROCHE-363484

PATIENT
  Age: 13 Year
  Sex: Male
  Weight: 55 kg

DRUGS (3)
  1. TAMIFLU [Suspect]
     Route: 048
     Dates: start: 20040113, end: 20040116
  2. ACETAMINOPHEN [Concomitant]
     Indication: PYREXIA
     Route: 048
  3. HUSTAZOL [Concomitant]
     Indication: COUGH
     Route: 048

REACTIONS (2)
  - CONVULSION [None]
  - ORTHOSTATIC HYPOTENSION [None]
